FAERS Safety Report 8402296-8 (Version None)
Quarter: 2012Q2

REPORT INFORMATION
  Report Type: 
  Country: None (occurrence: None)
  Receive Date: 20120601
  Receipt Date: 20120521
  Transmission Date: 20120825
  Serious: Yes (Other)
  Sender: FDA-Public Use
  Company Number: CA-JNJFOC-20120517622

PATIENT
  Age: 80 Year
  Sex: Male
  Weight: 61.24 kg

DRUGS (2)
  1. TYLENOL (CAPLET) [Suspect]
     Indication: PAIN
     Route: 048
     Dates: start: 20120511, end: 20120511
  2. TYLENOL (CAPLET) [Suspect]
     Route: 048

REACTIONS (1)
  - SYNCOPE [None]
